FAERS Safety Report 12275757 (Version 6)
Quarter: 2021Q1

REPORT INFORMATION
  Report Type: Other
  Country: BR (occurrence: BR)
  Receive Date: 20160418
  Receipt Date: 20210325
  Transmission Date: 20210419
  Serious: Yes (Other)
  Sender: FDA-Public Use
  Company Number: BR-ROCHE-793670

PATIENT
  Age: 51 Year
  Sex: Female
  Weight: 49 kg

DRUGS (17)
  1. MABTHERA [Suspect]
     Active Substance: RITUXIMAB
     Dosage: NEXT DOSE RECEIVED ON 04/MAY/2012
     Route: 042
     Dates: start: 20120420
  2. TYLENOL [Concomitant]
     Active Substance: ACETAMINOPHEN
     Indication: PREMEDICATION
     Route: 048
  3. AMYTRIL [Concomitant]
     Active Substance: AMITRIPTYLINE HYDROCHLORIDE
     Indication: INSOMNIA
  4. CITALOPRAM [Concomitant]
     Active Substance: CITALOPRAM HYDROBROMIDE
  5. MABTHERA [Suspect]
     Active Substance: RITUXIMAB
     Route: 042
     Dates: start: 20210219
  6. AZITHROMYCIN ANHYDROUS. [Suspect]
     Active Substance: AZITHROMYCIN ANHYDROUS
     Indication: PNEUMONIA
     Route: 065
  7. RIVOTRIL [Concomitant]
     Active Substance: CLONAZEPAM
     Indication: NERVOUSNESS
     Dosage: CONTINUOUS USE
     Route: 048
  8. SIMVASTATIN. [Concomitant]
     Active Substance: SIMVASTATIN
     Dosage: CONTINUOUS USE
     Route: 048
  9. MABTHERA [Suspect]
     Active Substance: RITUXIMAB
     Indication: RHEUMATOID ARTHRITIS
     Dosage: 9 MABTHERA INFUSIONS CYCLES IN FEB?2009, OCT?2009, MAY?2010, NOV?2010, JUL?2011, APR?2012, NOV?2012
     Route: 042
     Dates: start: 20090201, end: 2013
  10. RIVOTRIL [Concomitant]
     Active Substance: CLONAZEPAM
     Indication: INSOMNIA
  11. AMYTRIL [Concomitant]
     Active Substance: AMITRIPTYLINE HYDROCHLORIDE
     Indication: NERVOUSNESS
     Dosage: 1 TABLET AT NIGHT
  12. AMITRIPTYLINE [Concomitant]
     Active Substance: AMITRIPTYLINE
     Indication: DEPRESSION
     Dosage: CONTINUOUS USE
     Route: 048
  13. ATROVENT [Suspect]
     Active Substance: IPRATROPIUM BROMIDE
     Indication: INFLUENZA
     Dosage: DURING SEVEN DAYS
     Route: 065
  14. RIVOTRIL [Concomitant]
     Active Substance: CLONAZEPAM
     Indication: SEIZURE
  15. ALENIA (BRAZIL) [Concomitant]
     Active Substance: BUDESONIDE\FORMOTEROL FUMARATE
     Indication: PRODUCT USED FOR UNKNOWN INDICATION
  16. BEROTEC [Suspect]
     Active Substance: FENOTEROL HYDROBROMIDE
     Indication: INFLUENZA
     Dosage: DURING SEVEN DAYS
     Route: 065
  17. RIVOTRIL [Concomitant]
     Active Substance: CLONAZEPAM
     Indication: DEPRESSION
     Route: 048

REACTIONS (26)
  - Arthralgia [Recovered/Resolved]
  - Anxiety [Not Recovered/Not Resolved]
  - Weight increased [Not Recovered/Not Resolved]
  - Immunodeficiency [Recovering/Resolving]
  - Immunodeficiency [Unknown]
  - Infusion related reaction [Recovered/Resolved]
  - Drug hypersensitivity [Unknown]
  - Tachycardia [Recovered/Resolved]
  - Influenza [Unknown]
  - Abdominal distension [Recovered/Resolved]
  - Hypotension [Recovering/Resolving]
  - Blood pressure decreased [Recovered/Resolved]
  - Tremor [Unknown]
  - Pneumonia [Unknown]
  - Fear [Not Recovered/Not Resolved]
  - Limb discomfort [Recovered/Resolved]
  - Somnolence [Recovered/Resolved]
  - Influenza [Not Recovered/Not Resolved]
  - Weight increased [Unknown]
  - Arthralgia [Not Recovered/Not Resolved]
  - Blood urine present [Unknown]
  - Hyperaemia [Recovered/Resolved]
  - Tooth infection [Recovered/Resolved]
  - Pain [Not Recovered/Not Resolved]
  - Pain [Unknown]
  - Urinary tract infection [Recovering/Resolving]

NARRATIVE: CASE EVENT DATE: 20101117
